FAERS Safety Report 6854607-2 (Version None)
Quarter: 2010Q3

REPORT INFORMATION
  Report Type: 
  Country: None (occurrence: None)
  Receive Date: 20100717
  Receipt Date: 20080113
  Transmission Date: 20110219
  Serious: No
  Sender: FDA-Public Use
  Company Number: US-PFIZER INC-2008003638

PATIENT
  Sex: Female
  Weight: 125 kg

DRUGS (11)
  1. CHANTIX [Suspect]
     Indication: SMOKING CESSATION THERAPY
     Dates: start: 20071209
  2. BACLOFEN [Suspect]
     Indication: BACK DISORDER
  3. PROZAC [Concomitant]
  4. WELLBUTRIN [Concomitant]
  5. TRAZODONE HYDROCHLORIDE [Concomitant]
  6. HYDROCHLOROTHIAZIDE [Concomitant]
  7. ATENOLOL [Concomitant]
  8. BENICAR [Concomitant]
  9. ACTOS [Concomitant]
  10. METFORMIN HCL [Concomitant]
  11. LEVOTHROID [Concomitant]

REACTIONS (2)
  - DEPRESSION [None]
  - DRUG INEFFECTIVE [None]
